FAERS Safety Report 8339745-X (Version None)
Quarter: 2012Q2

REPORT INFORMATION
  Report Type: 
  Country: None (occurrence: None)
  Receive Date: 20120507
  Receipt Date: 20120427
  Transmission Date: 20120825
  Serious: Yes (Other)
  Sender: FDA-Public Use
  Company Number: US-BAYER-2012-016046

PATIENT
  Age: 22 Year
  Sex: Female
  Weight: 90.703 kg

DRUGS (1)
  1. YASMIN [Suspect]
     Dosage: UNK
     Dates: start: 20000101, end: 20070601

REACTIONS (6)
  - PULMONARY EMBOLISM [None]
  - EMOTIONAL DISTRESS [None]
  - CHEST PAIN [None]
  - OEDEMA PERIPHERAL [None]
  - PAIN [None]
  - INJURY [None]
